FAERS Safety Report 21481637 (Version 3)
Quarter: 2022Q4

REPORT INFORMATION
  Report Type: Spontaneous
  Country: US (occurrence: US)
  Receive Date: 20221020
  Receipt Date: 20221110
  Transmission Date: 20230113
  Serious: Yes (Other)
  Sender: FDA-Public Use
  Company Number: US-Merz Pharmaceuticals GmbH-22-03069

PATIENT
  Age: 57 Year
  Sex: Male
  Weight: 85 kg

DRUGS (7)
  1. XEOMIN [Suspect]
     Active Substance: INCOBOTULINUMTOXINA
     Indication: Skin wrinkling
     Route: 030
     Dates: start: 20221004, end: 20221004
  2. XEOMIN [Suspect]
     Active Substance: INCOBOTULINUMTOXINA
     Indication: Skin wrinkling
     Route: 030
  3. XEOMIN [Suspect]
     Active Substance: INCOBOTULINUMTOXINA
     Indication: Skin cosmetic procedure
     Route: 030
  4. Radiesse(+) [Concomitant]
     Indication: Skin cosmetic procedure
     Dates: start: 20221004, end: 20221004
  5. Radiesse(+) [Concomitant]
     Indication: Skin wrinkling
     Dates: start: 20221004, end: 20221004
  6. Radiesse(+) [Concomitant]
  7. Radiesse(+) [Concomitant]

REACTIONS (11)
  - Injection site pustule [Recovered/Resolved]
  - Injection site mass [Recovered/Resolved]
  - Injection site vesicles [Recovered/Resolved]
  - Injection site scab [Recovered/Resolved]
  - Injection site erythema [Recovered/Resolved]
  - Injection site pain [Recovered/Resolved]
  - Injection site hypoaesthesia [Recovered/Resolved]
  - Injection site paraesthesia [Recovered/Resolved]
  - Injection site oedema [Recovered/Resolved]
  - Injection site bruising [Recovered/Resolved]
  - Off label use [Unknown]

NARRATIVE: CASE EVENT DATE: 20221001
